FAERS Safety Report 18232906 (Version 1)
Quarter: 2020Q3

REPORT INFORMATION
  Report Type: Spontaneous
  Country: RU (occurrence: RU)
  Receive Date: 20200904
  Receipt Date: 20200904
  Transmission Date: 20201103
  Serious: Yes (Other)
  Sender: FDA-Public Use
  Company Number: RU-BAYER-2020-182987

PATIENT
  Age: 35 Year
  Sex: Female

DRUGS (1)
  1. QLAIRA [Suspect]
     Active Substance: DIENOGEST\ESTRADIOL VALERATE
     Indication: CONTRACEPTION
     Dosage: 1 DF, QD
     Route: 048
     Dates: start: 20200728

REACTIONS (6)
  - Depressed level of consciousness [None]
  - Depression [None]
  - Fear [None]
  - Abnormal withdrawal bleeding [Not Recovered/Not Resolved]
  - Depressed mood [None]
  - Panic reaction [None]

NARRATIVE: CASE EVENT DATE: 2020
